FAERS Safety Report 9914275 (Version 1)
Quarter: 2014Q1

REPORT INFORMATION
  Report Type: Spontaneous
  Country: NZ (occurrence: None)
  Receive Date: 20140218
  Receipt Date: 20140218
  Transmission Date: 20141002
  Serious: Yes (Hospitalization, Disabling)
  Sender: FDA-Public Use
  Company Number: 2014AP001226

PATIENT
  Age: 73 Year
  Sex: Male

DRUGS (6)
  1. FLUOXETINE [Suspect]
  2. WARFARIN [Suspect]
     Indication: ATRIAL FIBRILLATION
  3. CANDESARTAN CILEXETIL (CANDESARTAN CILEXETIL) [Concomitant]
  4. METOPROLOL (METOPROLOL) [Concomitant]
  5. SIMVASTATIN (SIMVASTATIN) [Concomitant]
  6. EZETIMIBE (ESETIMIBE) [Concomitant]

REACTIONS (2)
  - Spinal subdural haematoma [None]
  - Spontaneous haematoma [None]
